FAERS Safety Report 19907201 (Version 2)
Quarter: 2021Q4

REPORT INFORMATION
  Report Type: Spontaneous
  Country: DE (occurrence: DE)
  Receive Date: 20210930
  Receipt Date: 20211012
  Transmission Date: 20220303
  Serious: Yes (Hospitalization)
  Sender: FDA-Public Use
  Company Number: DE-ADRED-06407-01

PATIENT
  Age: 25 Year
  Sex: Female

DRUGS (3)
  1. MIRTAZAPINE [Suspect]
     Active Substance: MIRTAZAPINE
     Indication: Product used for unknown indication
     Dosage: 7.5 MILLIGRAM, QD
     Route: 048
  2. PREGABALIN [Suspect]
     Active Substance: PREGABALIN
     Indication: Product used for unknown indication
     Dosage: 150 MILLIGRAM, QD, 1-0-0-0
     Route: 048
  3. TIANEPTINE SODIUM [Suspect]
     Active Substance: TIANEPTINE SODIUM
     Indication: Product used for unknown indication
     Dosage: 12.5 MILLIGRAM, QD
     Route: 048

REACTIONS (4)
  - Facial paresis [Not Recovered/Not Resolved]
  - Eye movement disorder [Not Recovered/Not Resolved]
  - Vertigo [Not Recovered/Not Resolved]
  - Illusion [Not Recovered/Not Resolved]
